FAERS Safety Report 20373879 (Version 1)
Quarter: 2022Q1

REPORT INFORMATION
  Report Type: Spontaneous
  Country: DE (occurrence: DE)
  Receive Date: 20220125
  Receipt Date: 20220125
  Transmission Date: 20220424
  Serious: Yes (Hospitalization)
  Sender: FDA-Public Use
  Company Number: None

PATIENT
  Age: 62 Year
  Sex: Male

DRUGS (6)
  1. APIXABAN [Suspect]
     Active Substance: APIXABAN
     Indication: Product used for unknown indication
     Dosage: 5 MG, 1-0-1-0, TABLETS
     Route: 048
  2. CHOLECALCIFEROL [Concomitant]
     Active Substance: CHOLECALCIFEROL
     Dosage: 20000 IU, 1-0-0-0, CAPSULES
     Route: 048
  3. NALOXONE HYDROCHLORIDE W/TILIDINE H [Concomitant]
     Dosage: 8-100 MG, 1-0-1-0, TABLETS
     Route: 048
  4. LISINOPRIL AND HYDROCHLOROTHIAZIDE [Concomitant]
     Active Substance: HYDROCHLOROTHIAZIDE\LISINOPRIL
     Dosage: 12.5-20 MG, 0-0-0.5-0, TABLETS
     Route: 048
  5. BISOPROLOL [Concomitant]
     Active Substance: BISOPROLOL
     Dosage: 5 MG, 1-0-1-0, TABLETS
     Route: 048
  6. METFORMIN [Concomitant]
     Active Substance: METFORMIN HYDROCHLORIDE
     Dosage: 1000 MG, 1-0-1-0, TABLETS
     Route: 048

REACTIONS (5)
  - Erythema [Unknown]
  - Pain [Unknown]
  - Joint swelling [Unknown]
  - Impaired healing [Unknown]
  - Blister [Unknown]
